FAERS Safety Report 8723380 (Version 4)
Quarter: 2013Q3

REPORT INFORMATION
  Report Type: Spontaneous
  Country: JP (occurrence: JP)
  Receive Date: 20120814
  Receipt Date: 20130916
  Transmission Date: 20140515
  Serious: Yes (Other)
  Sender: FDA-Public Use
  Company Number: JP-PFIZER INC-2012193681

PATIENT
  Age: 49 Year
  Sex: Male

DRUGS (2)
  1. SUTENT [Suspect]
     Indication: METASTATIC RENAL CELL CARCINOMA
     Dosage: 50 MG, UNK
     Route: 048
     Dates: start: 200810, end: 201104
  2. TEMSIROLIMUS [Suspect]
     Indication: METASTATIC RENAL CELL CARCINOMA
     Dosage: 25 MG, UNK
     Dates: start: 201104, end: 2011

REACTIONS (2)
  - Appendicitis perforated [Recovering/Resolving]
  - Abscess intestinal [Recovering/Resolving]
